FAERS Safety Report 6276397-7 (Version None)
Quarter: 2009Q3

REPORT INFORMATION
  Report Type: 
  Country: None (occurrence: None)
  Receive Date: 20090720
  Receipt Date: 20090713
  Transmission Date: 20100115
  Serious: Yes (Death)
  Sender: FDA-Public Use
  Company Number: 2009SP001849

PATIENT
  Age: 31 Year
  Sex: Male

DRUGS (11)
  1. ESZOPICLONE [Suspect]
     Indication: INSOMNIA
     Dosage: ORAL
     Route: 048
     Dates: start: 20090620, end: 20090101
  2. CLORAZEPATE DIPOTASSIUM [Suspect]
     Indication: DEPRESSION
     Dosage: ORAL
     Route: 048
     Dates: start: 20080924, end: 20090101
  3. SULPIRIDE (SULPIRIDE) [Suspect]
     Indication: DEPRESSION
     Dosage: ORAL
     Route: 048
     Dates: start: 20080924, end: 20090101
  4. TOFRANIL [Suspect]
     Indication: DEPRESSION
     Dosage: ORAL
     Route: 048
     Dates: start: 20090602, end: 20090101
  5. BIOFERMIN [Concomitant]
  6. RAMOSETRON HYDROCHLORIDE [Concomitant]
  7. CEREKINON [Concomitant]
  8. THIATON [Concomitant]
  9. ALMARL [Concomitant]
  10. RIBOVIS [Concomitant]
  11. PREV MEDS [Concomitant]

REACTIONS (1)
  - COMPLETED SUICIDE [None]
